FAERS Safety Report 25504128 (Version 1)
Quarter: 2025Q3

REPORT INFORMATION
  Report Type: Spontaneous
  Country: US (occurrence: None)
  Receive Date: 20250701
  Receipt Date: 20250701
  Transmission Date: 20251020
  Serious: Yes (Other)
  Sender: FDA-CTU
  Company Number: None

PATIENT
  Age: 34 Year
  Sex: Male

DRUGS (1)
  1. ATORVASTATIN CALCIUM [Suspect]
     Active Substance: ATORVASTATIN CALCIUM
     Dosage: 1 TABLET DAILY ORAL
     Route: 048

REACTIONS (3)
  - Product use complaint [None]
  - Disease risk factor [None]
  - Familial risk factor [None]

NARRATIVE: CASE EVENT DATE: 20250701
